FAERS Safety Report 19928832 (Version 1)
Quarter: 2021Q4

REPORT INFORMATION
  Report Type: Spontaneous
  Country: US (occurrence: US)
  Receive Date: 20211005
  Receipt Date: 20211005
  Transmission Date: 20220303
  Serious: Yes (Hospitalization)
  Sender: FDA-Public Use
  Company Number: None

PATIENT
  Age: 74 Year
  Sex: Male

DRUGS (5)
  1. AMBRISENTAN [Suspect]
     Active Substance: AMBRISENTAN
     Indication: Pulmonary hypertension
     Dosage: TAKE 1 TABLET BY MOUTH EVERY DAY
     Route: 048
     Dates: start: 20190820
  2. SILDENAFIL [Concomitant]
     Active Substance: SILDENAFIL
  3. SILDENAFIL CITRATE [Concomitant]
     Active Substance: SILDENAFIL CITRATE
  4. VITAMIN C [Concomitant]
     Active Substance: ASCORBIC ACID
  5. VITAMIN D CAP [Concomitant]

REACTIONS (6)
  - COVID-19 [None]
  - Sepsis [None]
  - Staphylococcal infection [None]
  - Fall [None]
  - Hip fracture [None]
  - Therapy interrupted [None]

NARRATIVE: CASE EVENT DATE: 20210831
